FAERS Safety Report 7361438-6 (Version None)
Quarter: 2011Q1

REPORT INFORMATION
  Report Type: 
  Country: None (occurrence: None)
  Receive Date: 20110318
  Receipt Date: 20110315
  Transmission Date: 20110831
  Serious: No
  Sender: FDA-Public Use
  Company Number: US-TEVA-271705USA

PATIENT
  Sex: Female
  Weight: 83.99 kg

DRUGS (3)
  1. XANAX [Concomitant]
     Indication: ANXIETY
     Route: 048
  2. SPRINTEC [Concomitant]
     Indication: CONTRACEPTION
     Route: 048
  3. PLAN B ONE-STEP [Suspect]
     Indication: POST COITAL CONTRACEPTION
     Route: 048
     Dates: start: 20110303, end: 20110303

REACTIONS (1)
  - MENSTRUATION IRREGULAR [None]
